FAERS Safety Report 10541950 (Version 1)
Quarter: 2014Q4

REPORT INFORMATION
  Report Type: Spontaneous
  Country: AT (occurrence: AT)
  Receive Date: 20141024
  Receipt Date: 20141024
  Transmission Date: 20150529
  Serious: Yes (Other)
  Sender: FDA-Public Use
  Company Number: AT-ELI_LILLY_AND_COMPANY-AT201410003670

PATIENT
  Age: 91 Year
  Sex: Female

DRUGS (2)
  1. FORSTEO [Suspect]
     Active Substance: TERIPARATIDE
     Indication: OSTEOPOROSIS
     Dosage: EVERY SECOND DAY
     Route: 058
     Dates: start: 20140701, end: 20140714
  2. FORSTEO [Suspect]
     Active Substance: TERIPARATIDE
     Dosage: UNK, QD
     Route: 058
     Dates: start: 20140715

REACTIONS (3)
  - Fall [Unknown]
  - Fractured sacrum [Unknown]
  - Cachexia [Unknown]
